FAERS Safety Report 9752647 (Version 3)
Quarter: 2014Q1

REPORT INFORMATION
  Report Type: Spontaneous
  Country: JP (occurrence: None)
  Receive Date: 20131211
  Receipt Date: 20140304
  Transmission Date: 20141002
  Serious: Yes (Hospitalization)
  Sender: FDA-Public Use
  Company Number: DSJ-2013-26726

PATIENT
  Age: 63 Year
  Sex: Male
  Weight: 76.8 kg

DRUGS (4)
  1. OLMETEC [Suspect]
     Indication: HYPERTENSION
     Route: 048
     Dates: start: 20121105
  2. BLINDED CS-747S (TABLET) [Suspect]
     Indication: ISCHAEMIC STROKE
     Dosage: BLINDED(1 IN 1 D), PER ORAL
     Route: 048
     Dates: start: 20121212, end: 20140207
  3. TAKEPRON OD (LANSOPRAZOLE) (TABLET) (LANSOPRAZOLE) [Concomitant]
     Indication: HYPERCHLORHYDRIA
     Route: 048
     Dates: start: 20121105
  4. LIPITOR (ATORVASTATIN CALCIUM) (TABLET) (ATORVASTATIN CALCIUM) [Concomitant]
     Dates: start: 20121105

REACTIONS (3)
  - Retinal detachment [None]
  - Visual acuity reduced [None]
  - Cataract nuclear [None]
